FAERS Safety Report 8573762-X (Version None)
Quarter: 2012Q3

REPORT INFORMATION
  Report Type: 
  Country: None (occurrence: None)
  Receive Date: 20120806
  Receipt Date: 20120731
  Transmission Date: 20120928
  Serious: Yes (Other)
  Sender: FDA-Public Use
  Company Number: JP-GLAXOSMITHKLINE-B0811984A

PATIENT
  Sex: Female

DRUGS (10)
  1. PREDNISOLONE [Concomitant]
     Indication: ARTHRALGIA
     Route: 048
  2. UNKNOWN DRUG [Concomitant]
     Indication: ANGINA PECTORIS
     Route: 048
  3. UNKNOWN DRUG [Concomitant]
     Indication: OSTEOPOROSIS
     Route: 048
  4. FLUTICASONE PROPIONATE/SALMETEROL [Suspect]
     Indication: ASTHMA
     Dosage: 500MCG PER DAY
     Route: 055
     Dates: end: 20120601
  5. UNKNOWN DRUG [Concomitant]
     Indication: HYPERTENSION
     Route: 048
  6. UNKNOWN DRUG [Concomitant]
     Indication: IRRITABLE BOWEL SYNDROME
     Route: 048
  7. SYMBICORT [Concomitant]
     Indication: ASTHMA
     Route: 055
     Dates: end: 20110601
  8. BETAMETHASONE [Concomitant]
     Indication: ASTHMA
     Route: 065
     Dates: start: 20110601, end: 20120501
  9. ANTIALLERGIC DRUG [Concomitant]
     Indication: ASTHMA
     Route: 065
  10. UNKNOWN DRUG [Concomitant]
     Indication: GASTROOESOPHAGEAL REFLUX DISEASE
     Route: 048

REACTIONS (4)
  - DYSPHONIA [None]
  - THROAT IRRITATION [None]
  - VOCAL CORD PARALYSIS [None]
  - COMPUTERISED TOMOGRAM ABNORMAL [None]
